FAERS Safety Report 18227169 (Version 1)
Quarter: 2020Q3

REPORT INFORMATION
  Report Type: Spontaneous
  Country: US (occurrence: US)
  Receive Date: 20200903
  Receipt Date: 20200903
  Transmission Date: 20201103
  Serious: No
  Sender: FDA-Public Use
  Company Number: US-EISAI MEDICAL RESEARCH-EC-2020-079344

PATIENT
  Age: 70 Year
  Sex: Female

DRUGS (1)
  1. DAYVIGO [Suspect]
     Active Substance: LEMBOREXANT
     Indication: SLEEP DISORDER
     Route: 048
     Dates: start: 202008, end: 202008

REACTIONS (1)
  - Hypnopompic hallucination [Unknown]

NARRATIVE: CASE EVENT DATE: 202008
